FAERS Safety Report 9168379 (Version 2)
Quarter: 2013Q2

REPORT INFORMATION
  Report Type: Spontaneous
  Country: US (occurrence: US)
  Receive Date: 20130318
  Receipt Date: 20130401
  Transmission Date: 20140414
  Serious: No
  Sender: FDA-Public Use
  Company Number: US-PFIZER INC-2013089041

PATIENT
  Age: 41 Year
  Sex: Female
  Weight: 109 kg

DRUGS (2)
  1. LYRICA [Suspect]
     Indication: FIBROMYALGIA
     Dosage: 50 MG, 3X/DAY
     Dates: start: 20130305
  2. CYCLOBENZAPRINE [Concomitant]
     Indication: SLEEP DISORDER
     Dosage: 10 MG, AS NEEDED

REACTIONS (2)
  - Pain [Not Recovered/Not Resolved]
  - Constipation [Recovering/Resolving]
